FAERS Safety Report 24384515 (Version 3)
Quarter: 2025Q3

REPORT INFORMATION
  Report Type: Report from Study
  Country: JP (occurrence: JP)
  Receive Date: 20241001
  Receipt Date: 20250805
  Transmission Date: 20251021
  Serious: Yes (Hospitalization, Other)
  Sender: ALEXION PHARMACEUTICALS
  Company Number: JP-AstraZeneca-CH-00678961A

PATIENT
  Age: 75 Year
  Sex: Female
  Weight: 49.6 kg

DRUGS (23)
  1. ULTOMIRIS [Suspect]
     Active Substance: RAVULIZUMAB-CWVZ
     Indication: Myasthenia gravis
     Dates: start: 20220921, end: 20220921
  2. ULTOMIRIS [Suspect]
     Active Substance: RAVULIZUMAB-CWVZ
     Dosage: 3000 MILLIGRAM, Q8W
     Dates: start: 20221005
  3. NEXIUM [Concomitant]
     Active Substance: ESOMEPRAZOLE MAGNESIUM
     Indication: Prophylaxis
  4. NEXIUM [Concomitant]
     Active Substance: ESOMEPRAZOLE MAGNESIUM
     Dosage: 10 MILLIGRAM, QD AFTER BREAKFAST
     Route: 065
     Dates: start: 20240612
  5. SULFAMETHOXAZOLE\TRIMETHOPRIM [Concomitant]
     Active Substance: SULFAMETHOXAZOLE\TRIMETHOPRIM
     Indication: Antibiotic therapy
  6. SULFAMETHOXAZOLE\TRIMETHOPRIM [Concomitant]
     Active Substance: SULFAMETHOXAZOLE\TRIMETHOPRIM
     Indication: Prophylaxis
     Dosage: 2 DOSAGE FORM, QOD AFTER BREAKFAST
     Route: 065
     Dates: start: 20240612
  7. MAGNESIUM OXIDE [Concomitant]
     Active Substance: MAGNESIUM OXIDE
     Indication: Antacid therapy
  8. MAGNESIUM OXIDE [Concomitant]
     Active Substance: MAGNESIUM OXIDE
     Indication: Constipation
     Dosage: 250 MILLIGRAM, TID AFTER BREAKFAST, LUNCH AND DINNER
     Route: 065
     Dates: start: 20240612
  9. REBAMIPIDE [Concomitant]
     Active Substance: REBAMIPIDE
     Indication: Gastritis
  10. REBAMIPIDE [Concomitant]
     Active Substance: REBAMIPIDE
     Indication: Gastric ulcer
     Dosage: 100 MILLIGRAM, TID AFTER BREAKFAST, LUNCH AND DINNER
     Route: 065
     Dates: start: 20240612
  11. REBAMIPIDE [Concomitant]
     Active Substance: REBAMIPIDE
     Indication: Prophylaxis
  12. PREDONINE [Concomitant]
     Active Substance: PREDNISOLONE
     Indication: Steroid therapy
  13. PREDONINE [Concomitant]
     Active Substance: PREDNISOLONE
     Indication: Myasthenia gravis
     Dosage: 5 MILLIGRAM, BID AFTER BREAKFAST
     Route: 065
     Dates: start: 20240612
  14. NEORAL [Concomitant]
     Active Substance: CYCLOSPORINE
     Indication: Immunosuppressant drug therapy
     Dosage: 50 MILLIGRAM, BID AFTER BREAKFAST AND DINNER
     Route: 065
  15. NEORAL [Concomitant]
     Active Substance: CYCLOSPORINE
     Indication: Myasthenia gravis
     Dosage: 10 MILLIGRAM, BID AFTER BREAKFAST AND DINNER
     Route: 065
  16. NEORAL [Concomitant]
     Active Substance: CYCLOSPORINE
  17. Loxonin pap [Concomitant]
     Indication: Analgesic therapy
     Dosage: 100 MILLIGRAM, QD AS PHYSICIAN^S INSTRUCTION
     Route: 065
     Dates: start: 20240612
  18. ICOSAPENT ETHYL [Concomitant]
     Active Substance: ICOSAPENT ETHYL
     Indication: Hyperlipidaemia
  19. ICOSAPENT ETHYL [Concomitant]
     Active Substance: ICOSAPENT ETHYL
     Dosage: 900 MILLIGRAM, QD AFTER BREAKFAST
     Route: 065
     Dates: start: 20240612
  20. LIPITOR [Concomitant]
     Active Substance: ATORVASTATIN CALCIUM
     Indication: Hyperlipidaemia
  21. LIPITOR [Concomitant]
     Active Substance: ATORVASTATIN CALCIUM
     Dosage: 10 MILLIGRAM, QOD AFTER DINNER
     Route: 065
     Dates: start: 20240612
  22. SODIUM FERROUS CITRATE [Concomitant]
     Active Substance: SODIUM FERROUS CITRATE
     Dosage: 50 MILLIGRAM, QD AFTER BREAKFAST
     Route: 065
  23. ADALAT CC [Concomitant]
     Active Substance: NIFEDIPINE
     Indication: Hypertension

REACTIONS (10)
  - Large intestine perforation [Recovering/Resolving]
  - Peritonitis [Recovering/Resolving]
  - Septic shock [Recovering/Resolving]
  - Postoperative abscess [Unknown]
  - Ascites [Unknown]
  - Muscular weakness [Unknown]
  - Pneumonia aspiration [Recovering/Resolving]
  - Diverticulitis [Unknown]
  - Dysphagia [Unknown]
  - Inflammation [Recovering/Resolving]

NARRATIVE: CASE EVENT DATE: 20240720
